FAERS Safety Report 17469332 (Version 1)
Quarter: 2020Q1

REPORT INFORMATION
  Report Type: Report from Study
  Country: US (occurrence: US)
  Receive Date: 20200227
  Receipt Date: 20200227
  Transmission Date: 20200409
  Serious: Yes (Other)
  Sender: FDA-Public Use
  Company Number: NVSC2020US053888

PATIENT
  Age: 34 Year
  Sex: Female
  Weight: 111.8 kg

DRUGS (1)
  1. KYMRIAH [Suspect]
     Active Substance: TISAGENLECLEUCEL
     Indication: CENTRAL NERVOUS SYSTEM LYMPHOMA
     Dosage: 2.16X10^6 CELLS/KG
     Route: 042
     Dates: start: 20200212, end: 20200212

REACTIONS (7)
  - Asthenia [Unknown]
  - Vision blurred [Unknown]
  - Hypoaesthesia [Unknown]
  - Neurotoxicity [Unknown]
  - Headache [Unknown]
  - Urinary incontinence [Unknown]
  - Facial paralysis [Unknown]

NARRATIVE: CASE EVENT DATE: 20200215
